FAERS Safety Report 6038151-0 (Version None)
Quarter: 2009Q1

REPORT INFORMATION
  Report Type: 
  Country: None (occurrence: None)
  Receive Date: 20090113
  Receipt Date: 20090113
  Transmission Date: 20090719
  Serious: Yes (Life-Threatening, Hospitalization)
  Sender: FDA-Public Use
  Company Number: None

PATIENT
  Age: 69 Year
  Sex: Female

DRUGS (9)
  1. HYDROMORPHONE HCL [Suspect]
     Indication: PAIN
     Dosage: 15 TO 16ML ONE TIME  SQ
     Route: 058
     Dates: start: 20081023, end: 20081023
  2. ASPIRIN [Concomitant]
  3. ATENOLOL [Concomitant]
  4. BUMETANIDE [Concomitant]
  5. CELEXA [Concomitant]
  6. FAMOTIDINE [Concomitant]
  7. HYDROXYZINE [Concomitant]
  8. LEVOTHYROXINE [Concomitant]
  9. METOLAZONE [Concomitant]

REACTIONS (11)
  - AGITATION [None]
  - BLOOD PRESSURE INCREASED [None]
  - CONFUSIONAL STATE [None]
  - DIZZINESS [None]
  - HEART RATE INCREASED [None]
  - OVERDOSE [None]
  - PNEUMONIA ASPIRATION [None]
  - PUPIL FIXED [None]
  - RESPIRATORY DEPRESSION [None]
  - UNRESPONSIVE TO STIMULI [None]
  - WHEEZING [None]
